FAERS Safety Report 19010395 (Version 1)
Quarter: 2021Q1

REPORT INFORMATION
  Report Type: Report from Study
  Country: FR (occurrence: FR)
  Receive Date: 20210316
  Receipt Date: 20210316
  Transmission Date: 20210420
  Serious: Yes (Hospitalization)
  Sender: FDA-Public Use
  Company Number: FR-REGENERON PHARMACEUTICALS, INC.-2021-28939

PATIENT

DRUGS (7)
  1. CLARELUX [Concomitant]
     Active Substance: CLOBETASOL PROPIONATE
     Indication: RASH
     Dosage: 1 DF, TID
     Route: 061
     Dates: start: 20210122
  2. PERMIXON [Concomitant]
     Active Substance: HERBALS\SAW PALMETTO
     Indication: PROSTATIC ADENOMA
     Dosage: 160 MG, QD
     Route: 048
  3. PRITOR                             /01102601/ [Concomitant]
     Active Substance: LACIDIPINE
     Indication: HYPERTENSION
     Dosage: 40 MG, QD
     Route: 048
  4. CEMIPLIMAB [Suspect]
     Active Substance: CEMIPLIMAB
     Indication: SQUAMOUS CELL CARCINOMA OF SKIN
     Dosage: 350 MG, Q3W
     Route: 042
     Dates: start: 20201028, end: 20201230
  5. LIPIKAR                            /02826001/ [Concomitant]
     Active Substance: COSMETICS
     Indication: RASH
     Dosage: UNK
     Route: 061
     Dates: start: 20210112
  6. ADENURIC [Concomitant]
     Active Substance: FEBUXOSTAT
     Indication: GOUT
     Dosage: 80 MG, QD
     Route: 048
  7. ZOXAN                              /00639302/ [Concomitant]
     Active Substance: DOXAZOSIN MESYLATE
     Indication: PROSTATIC ADENOMA
     Dosage: 8 G, QD
     Route: 048

REACTIONS (2)
  - Pulmonary toxicity [Recovered/Resolved]
  - Hepatitis [Recovered/Resolved]

NARRATIVE: CASE EVENT DATE: 20210224
